FAERS Safety Report 7323528-3 (Version None)
Quarter: 2011Q1

REPORT INFORMATION
  Report Type: 
  Country: None (occurrence: None)
  Receive Date: 20110301
  Receipt Date: 20110223
  Transmission Date: 20110831
  Serious: Yes (Life-Threatening, Hospitalization)
  Sender: FDA-Public Use
  Company Number: PHHO2008US14467

PATIENT
  Sex: Male

DRUGS (2)
  1. NEORAL [Suspect]
  2. ZORTRESS [Suspect]
     Indication: IMMUNOSUPPRESSION
     Dosage: 1.5 MG, BID
     Route: 048
     Dates: start: 20060801

REACTIONS (13)
  - NEPHROPATHY TOXIC [None]
  - RENAL FAILURE ACUTE [None]
  - HYPERKALAEMIA [None]
  - COUGH [None]
  - TACHYCARDIA [None]
  - BRONCHIAL HAEMORRHAGE [None]
  - DEHYDRATION [None]
  - ALVEOLITIS [None]
  - PYREXIA [None]
  - PNEUMONIA [None]
  - OROPHARYNGEAL PAIN [None]
  - CONCOMITANT DISEASE PROGRESSION [None]
  - PULMONARY CONGESTION [None]
